FAERS Safety Report 7435632-X (Version None)
Quarter: 2011Q2

REPORT INFORMATION
  Report Type: 
  Country: None (occurrence: None)
  Receive Date: 20110425
  Receipt Date: 20110302
  Transmission Date: 20111010
  Serious: No
  Sender: FDA-Public Use
  Company Number: US-MYLANLABS-2011S1004385

PATIENT
  Age: 10 Year
  Sex: Female
  Weight: 24.95 kg

DRUGS (1)
  1. CLONIDINE [Suspect]
     Indication: ATTENTION DEFICIT/HYPERACTIVITY DISORDER
     Dosage: Q WKLY
     Route: 062
     Dates: start: 20100801

REACTIONS (1)
  - APPLICATION SITE RASH [None]
